FAERS Safety Report 9970049 (Version 1)
Quarter: 2014Q1

REPORT INFORMATION
  Report Type: Spontaneous
  Country: GB (occurrence: None)
  Receive Date: 20140304
  Receipt Date: 20140304
  Transmission Date: 20141002
  Serious: Yes (Other)
  Sender: FDA-Public Use
  Company Number: 2014000057

PATIENT
  Age: 53 Year
  Sex: Female

DRUGS (1)
  1. ACEON (PERINDOPRIL ERBUMINE) TABLET, 8MG [Suspect]
     Indication: HYPERTENSION
     Route: 048
     Dates: start: 20140201, end: 20140202

REACTIONS (2)
  - Gastrointestinal disorder [None]
  - Dyspepsia [None]
